FAERS Safety Report 9609308 (Version 1)
Quarter: 2013Q4

REPORT INFORMATION
  Report Type: Spontaneous
  Country: US (occurrence: None)
  Receive Date: 20131007
  Receipt Date: 20131007
  Transmission Date: 20140711
  Serious: No
  Sender: FDA-Public Use
  Company Number: None

PATIENT
  Age: 71 Year
  Sex: Female

DRUGS (2)
  1. TREANDA [Suspect]
     Indication: PLASMA CELL MYELOMA
     Dates: start: 201309, end: 201310
  2. KYPROLIS [Suspect]
     Indication: PLASMA CELL MYELOMA
     Dates: start: 201309, end: 201310

REACTIONS (1)
  - Platelet count decreased [None]
